FAERS Safety Report 12282967 (Version 1)
Quarter: 2016Q2

REPORT INFORMATION
  Report Type: Spontaneous
  Country: DE (occurrence: DE)
  Receive Date: 20160419
  Receipt Date: 20160419
  Transmission Date: 20160815
  Serious: Yes (Hospitalization, Other)
  Sender: FDA-Public Use
  Company Number: DE-PFIZER INC-2016145103

PATIENT
  Age: 67 Year
  Sex: Female

DRUGS (5)
  1. LYRICA [Suspect]
     Active Substance: PREGABALIN
     Dosage: UNK
     Dates: end: 2016
  2. TREVILOR RETARD [Suspect]
     Active Substance: VENLAFAXINE HYDROCHLORIDE
     Dosage: 150 MG, 1X/DAY 1-0-0
     Dates: end: 201601
  3. PREGABALIN. [Suspect]
     Active Substance: PREGABALIN
     Dosage: 75 MG, 1X/DAY 0-0-1
     Dates: end: 2016
  4. SIMVASTATIN. [Suspect]
     Active Substance: SIMVASTATIN
     Dosage: 40 MG, 1X/DAY 0-0-1
     Dates: end: 2016
  5. MELPERONE [Concomitant]
     Active Substance: MELPERONE
     Dosage: 25 MG, 1X/DAY 0-0-1

REACTIONS (12)
  - Pneumonia [Recovering/Resolving]
  - Gastrointestinal haemorrhage [Recovering/Resolving]
  - Hyponatraemia [Recovering/Resolving]
  - Hiatus hernia [Unknown]
  - Acute myeloid leukaemia [Unknown]
  - Gastritis erosive [Recovering/Resolving]
  - Pancytopenia [Recovering/Resolving]
  - Laceration [Unknown]
  - Circulatory collapse [Unknown]
  - Hypokalaemia [Recovering/Resolving]
  - Erosive duodenitis [Recovering/Resolving]
  - Myelodysplastic syndrome [Unknown]

NARRATIVE: CASE EVENT DATE: 201601
